FAERS Safety Report 4998052-3 (Version None)
Quarter: 2006Q2

REPORT INFORMATION
  Report Type: 
  Country: None (occurrence: None)
  Receive Date: 20060510
  Receipt Date: 20060314
  Transmission Date: 20061013
  Serious: Yes (Hospitalization)
  Sender: FDA-Public Use
  Company Number: CG-MERCK-0604USA02902

PATIENT
  Age: 14 Year
  Sex: Female
  Weight: 42 kg

DRUGS (1)
  1. STROMECTOL [Suspect]
     Route: 048
     Dates: start: 20060129, end: 20060129

REACTIONS (7)
  - ABDOMINAL PAIN [None]
  - ARTHRALGIA [None]
  - FATIGUE [None]
  - HEADACHE [None]
  - OCULAR HYPERAEMIA [None]
  - PYREXIA [None]
  - SOMNOLENCE [None]
